FAERS Safety Report 5453900-8 (Version None)
Quarter: 2007Q3

REPORT INFORMATION
  Report Type: 
  Country: None (occurrence: None)
  Receive Date: 20070917
  Receipt Date: 20070911
  Transmission Date: 20080115
  Serious: Yes (Other)
  Sender: FDA-Public Use
  Company Number: D0054526A

PATIENT
  Age: 19 Year
  Sex: Male
  Weight: 84 kg

DRUGS (1)
  1. LAMICTAL [Suspect]
     Dosage: 100MG SEE DOSAGE TEXT
     Route: 048
     Dates: start: 20070910, end: 20070910

REACTIONS (5)
  - DIZZINESS [None]
  - DRUG ABUSER [None]
  - HYPERTENSION [None]
  - VISUAL DISTURBANCE [None]
  - VOMITING [None]
